FAERS Safety Report 23063150 (Version 1)
Quarter: 2023Q4

REPORT INFORMATION
  Report Type: Spontaneous
  Country: US (occurrence: None)
  Receive Date: 20231012
  Receipt Date: 20231012
  Transmission Date: 20240109
  Serious: Yes (Death)
  Sender: FDA-Public Use
  Company Number: None

PATIENT
  Age: 70 Year
  Sex: Male
  Weight: 122 kg

DRUGS (2)
  1. IPILIMUMAB [Suspect]
     Active Substance: IPILIMUMAB
     Indication: Metastatic malignant melanoma
     Dosage: OTHER FREQUENCY : EVERY 3 WEEKS;?
     Route: 040
     Dates: start: 20230802, end: 20230913
  2. NIVOLUMAB [Suspect]
     Active Substance: NIVOLUMAB
     Indication: Metastatic malignant melanoma
     Dosage: FREQUENCY : EVERY OTHER WEEK;?
     Route: 040
     Dates: start: 20230802, end: 20230913

REACTIONS (9)
  - Acute myocardial infarction [None]
  - Hypervolaemia [None]
  - Myocarditis [None]
  - Cardiac procedure complication [None]
  - Left ventricular failure [None]
  - Myasthenic syndrome [None]
  - Dysphagia [None]
  - Oesophageal motility disorder [None]
  - Respiratory failure [None]

NARRATIVE: CASE EVENT DATE: 20231003
